FAERS Safety Report 4362903-6 (Version None)
Quarter: 2004Q2

REPORT INFORMATION
  Report Type: 
  Country: None (occurrence: None)
  Receive Date: 20040518
  Receipt Date: 20040505
  Transmission Date: 20050107
  Serious: Yes (Hospitalization, Other)
  Sender: FDA-Public Use
  Company Number: 2004030795

PATIENT
  Age: 51 Year
  Sex: Male

DRUGS (3)
  1. VIAGRA [Suspect]
     Indication: ERECTILE DYSFUNCTION
     Dosage: 50 MG (50 MG, 1 IN 1 D), ORAL
     Route: 048
  2. ISOPHANE INSULIN [Concomitant]
  3. ENALAPRIL MALEATE [Concomitant]

REACTIONS (2)
  - CHEST PAIN [None]
  - TRIPLE VESSEL BYPASS GRAFT [None]
